FAERS Safety Report 9041191 (Version 1)
Quarter: 2013Q1

REPORT INFORMATION
  Report Type: Spontaneous
  Country: US (occurrence: None)
  Receive Date: 20130123
  Receipt Date: 20130123
  Transmission Date: 20140127
  Serious: Yes (Other)
  Sender: FDA-Public Use
  Company Number: None

PATIENT
  Age: 80 Year
  Sex: Male
  Weight: 102.51 kg

DRUGS (1)
  1. ANDROGEL [Suspect]
     Indication: HORMONE LEVEL ABNORMAL
     Dosage: 2 PUMPS DAILY
     Dates: start: 201206, end: 201212

REACTIONS (4)
  - Breast pain [None]
  - Breast enlargement [None]
  - Testicular pain [None]
  - Blood pressure increased [None]
